FAERS Safety Report 14468184 (Version 6)
Quarter: 2021Q3

REPORT INFORMATION
  Report Type: Other
  Country: CA (occurrence: CA)
  Receive Date: 20180131
  Receipt Date: 20210816
  Transmission Date: 20211014
  Serious: Yes (Death, Hospitalization, Disabling, Other)
  Sender: FDA-Public Use
  Company Number: CA-APOTEX-2017AP009064

PATIENT
  Age: 62 Year
  Sex: Male
  Weight: 92 kg

DRUGS (62)
  1. DOXYCYCLINE. [Suspect]
     Active Substance: DOXYCYCLINE
     Indication: INADEQUATE DIET
     Dosage: UNK
     Route: 065
  2. DOXYCYCLINE. [Suspect]
     Active Substance: DOXYCYCLINE
     Indication: OSTEOMYELITIS
  3. CEFTAROLINE FOSAMIL ACETATE [Suspect]
     Active Substance: CEFTAROLINE FOSAMIL
     Indication: PARASPINAL ABSCESS
     Dosage: 300 MILLIGRAM, BID
     Route: 042
  4. CEFTAROLINE FOSAMIL ACETATE [Suspect]
     Active Substance: CEFTAROLINE FOSAMIL
     Indication: INADEQUATE DIET
  5. RIFAMPIN. [Suspect]
     Active Substance: RIFAMPIN
     Indication: SEPSIS
  6. VANCOMYCIN [Suspect]
     Active Substance: VANCOMYCIN
     Indication: OESOPHAGEAL ABSCESS
  7. DAPTOMYCIN. [Suspect]
     Active Substance: DAPTOMYCIN
     Indication: PARASPINAL ABSCESS
  8. LINEZOLID. [Suspect]
     Active Substance: LINEZOLID
     Indication: PARASPINAL ABSCESS
  9. LINEZOLID. [Suspect]
     Active Substance: LINEZOLID
     Indication: OSTEOMYELITIS
  10. TIGECYCLINE. [Suspect]
     Active Substance: TIGECYCLINE
     Indication: INTERVERTEBRAL DISCITIS
  11. CUBICIN [Suspect]
     Active Substance: DAPTOMYCIN
     Indication: INTERVERTEBRAL DISCITIS
     Dosage: 900 MG, QD
     Route: 042
  12. RIFAMPIN. [Suspect]
     Active Substance: RIFAMPIN
     Indication: PARASPINAL ABSCESS
     Dosage: 300 MG, BID
     Route: 048
  13. RIFAMPICIN [Suspect]
     Active Substance: RIFAMPIN
     Indication: INTERVERTEBRAL DISCITIS
     Dosage: 300 MILLIGRAM, BID
     Route: 048
  14. DOXYCYCLINE. [Suspect]
     Active Substance: DOXYCYCLINE
     Indication: OESOPHAGEAL ABSCESS
     Dosage: 100 MG, BID
     Route: 048
  15. DOXYCYCLINE. [Suspect]
     Active Substance: DOXYCYCLINE
     Indication: INTERVERTEBRAL DISCITIS
  16. LINEZOLID. [Suspect]
     Active Substance: LINEZOLID
     Indication: BURKHOLDERIA CEPACIA COMPLEX INFECTION
     Dosage: UNK
     Route: 048
  17. CEFTAROLINE FOSAMIL ACETATE [Suspect]
     Active Substance: CEFTAROLINE FOSAMIL
     Indication: SEPSIS
     Dosage: 300 MILLIGRAM, BID
     Route: 042
  18. CUBICIN [Suspect]
     Active Substance: DAPTOMYCIN
     Indication: OSTEOMYELITIS
     Dosage: 700 MG, QD
     Route: 042
  19. CUBICIN [Suspect]
     Active Substance: DAPTOMYCIN
     Indication: SEPSIS
     Dosage: 700 MG, QD (DOSAGE FORM: INJECTION)
     Route: 042
  20. VANCOMYCIN [Suspect]
     Active Substance: VANCOMYCIN
     Indication: SEPSIS
  21. VAL VANCOMYCIN [Suspect]
     Active Substance: VANCOMYCIN HYDROCHLORIDE
     Indication: PARASPINAL ABSCESS
     Dosage: UNK
     Route: 065
  22. VAL VANCOMYCIN [Suspect]
     Active Substance: VANCOMYCIN HYDROCHLORIDE
     Indication: INTERVERTEBRAL DISCITIS
  23. DAPTOMYCIN. [Suspect]
     Active Substance: DAPTOMYCIN
     Indication: SEPSIS
     Dosage: UNK
     Route: 065
  24. DAPTOMYCIN. [Suspect]
     Active Substance: DAPTOMYCIN
     Indication: BURKHOLDERIA CEPACIA COMPLEX INFECTION
  25. LINEZOLID. [Suspect]
     Active Substance: LINEZOLID
     Indication: SEPSIS
     Dosage: 600 MG, BID
     Route: 048
  26. TIGECYCLINE. [Suspect]
     Active Substance: TIGECYCLINE
     Indication: SEPSIS
     Dosage: 50 MG, BID
     Route: 042
  27. TIGECYCLINE. [Suspect]
     Active Substance: TIGECYCLINE
     Indication: INADEQUATE DIET
     Dosage: 50 MG, BID
     Route: 042
  28. TIGECYCLINE. [Suspect]
     Active Substance: TIGECYCLINE
     Indication: OSTEOMYELITIS
     Dosage: UNK
     Route: 065
  29. CEFTAROLINE FOSAMIL ACETATE [Suspect]
     Active Substance: CEFTAROLINE FOSAMIL
     Indication: INTERVERTEBRAL DISCITIS
     Dosage: UNK
     Route: 065
  30. RIFAMPIN. [Suspect]
     Active Substance: RIFAMPIN
     Indication: BURKHOLDERIA CEPACIA COMPLEX INFECTION
  31. VANCOMYCIN [Suspect]
     Active Substance: VANCOMYCIN
     Indication: OSTEOMYELITIS
     Dosage: UNK
     Route: 065
  32. DOXYCYCLINE. [Suspect]
     Active Substance: DOXYCYCLINE
     Indication: SEPSIS
     Dosage: 100 MG, BID
     Route: 048
  33. DOXYCYCLINE. [Suspect]
     Active Substance: DOXYCYCLINE
     Indication: BURKHOLDERIA CEPACIA COMPLEX INFECTION
     Dosage: UNK
     Route: 048
  34. LINEZOLID. [Suspect]
     Active Substance: LINEZOLID
     Indication: INADEQUATE DIET
     Dosage: UNK
     Route: 065
  35. TIGECYCLINE. [Suspect]
     Active Substance: TIGECYCLINE
     Indication: PARASPINAL ABSCESS
     Dosage: 50 MG, BID
     Route: 042
  36. CEFTAROLINE FOSAMIL ACETATE [Suspect]
     Active Substance: CEFTAROLINE FOSAMIL
     Indication: BURKHOLDERIA CEPACIA COMPLEX INFECTION
  37. CUBICIN [Suspect]
     Active Substance: DAPTOMYCIN
     Indication: INADEQUATE DIET
     Dosage: UNK
     Route: 042
  38. RIFAMPIN. [Suspect]
     Active Substance: RIFAMPIN
     Indication: OSTEOMYELITIS
     Dosage: UNK
     Route: 065
  39. RIFAMPIN. [Suspect]
     Active Substance: RIFAMPIN
     Indication: OESOPHAGEAL ABSCESS
  40. VANCOMYCIN [Suspect]
     Active Substance: VANCOMYCIN
     Indication: PARASPINAL ABSCESS
     Dosage: UNK
     Route: 042
  41. DAPTOMYCIN. [Suspect]
     Active Substance: DAPTOMYCIN
     Indication: OSTEOMYELITIS
  42. DAPTOMYCIN. [Suspect]
     Active Substance: DAPTOMYCIN
     Indication: INTERVERTEBRAL DISCITIS
  43. RIFAMPICIN [Suspect]
     Active Substance: RIFAMPIN
     Indication: OSTEOMYELITIS
     Dosage: UNK
     Route: 048
  44. DOXYCYCLINE. [Suspect]
     Active Substance: DOXYCYCLINE
     Indication: PARASPINAL ABSCESS
  45. LINEZOLID. [Suspect]
     Active Substance: LINEZOLID
     Indication: OESOPHAGEAL ABSCESS
     Dosage: 600 MG, BID
     Route: 048
  46. LINEZOLID. [Suspect]
     Active Substance: LINEZOLID
     Indication: INTERVERTEBRAL DISCITIS
  47. TIGECYCLINE. [Suspect]
     Active Substance: TIGECYCLINE
     Indication: BURKHOLDERIA CEPACIA COMPLEX INFECTION
     Dosage: 100 MG, QD
     Route: 042
  48. CEFTAROLINE FOSAMIL ACETATE [Suspect]
     Active Substance: CEFTAROLINE FOSAMIL
     Indication: OSTEOMYELITIS
     Dosage: 300 MILLIGRAM, Q.12H
     Route: 042
  49. VANCOMYCIN [Suspect]
     Active Substance: VANCOMYCIN
     Indication: INADEQUATE DIET
  50. VANCOMYCIN [Suspect]
     Active Substance: VANCOMYCIN
     Indication: BURKHOLDERIA CEPACIA COMPLEX INFECTION
  51. RIFAMPICIN [Suspect]
     Active Substance: RIFAMPIN
     Indication: PARASPINAL ABSCESS
     Dosage: UNK
     Route: 065
  52. TIGECYCLINE. [Suspect]
     Active Substance: TIGECYCLINE
     Indication: OESOPHAGEAL ABSCESS
     Dosage: 100 MG, TOTAL
     Route: 042
  53. CEFTAROLINE FOSAMIL ACETATE [Suspect]
     Active Substance: CEFTAROLINE FOSAMIL
     Indication: OESOPHAGEAL ABSCESS
     Dosage: UNK
     Route: 042
  54. RIFAMPIN. [Suspect]
     Active Substance: RIFAMPIN
     Indication: INADEQUATE DIET
  55. DAPTOMYCIN. [Suspect]
     Active Substance: DAPTOMYCIN
     Indication: INADEQUATE DIET
  56. CUBICIN [Suspect]
     Active Substance: DAPTOMYCIN
     Indication: PARASPINAL ABSCESS
     Dosage: 900 MG, QD
     Route: 042
  57. CUBICIN [Suspect]
     Active Substance: DAPTOMYCIN
     Indication: OESOPHAGEAL ABSCESS
     Dosage: UNK
     Route: 065
  58. CUBICIN [Suspect]
     Active Substance: DAPTOMYCIN
     Indication: BURKHOLDERIA CEPACIA COMPLEX INFECTION
  59. RIFAMPIN. [Suspect]
     Active Substance: RIFAMPIN
     Indication: INTERVERTEBRAL DISCITIS
     Dosage: 300 MG, BID
     Route: 048
  60. VANCOMYCIN [Suspect]
     Active Substance: VANCOMYCIN
     Indication: INTERVERTEBRAL DISCITIS
  61. VAL VANCOMYCIN [Suspect]
     Active Substance: VANCOMYCIN HYDROCHLORIDE
     Indication: OSTEOMYELITIS
  62. DAPTOMYCIN. [Suspect]
     Active Substance: DAPTOMYCIN
     Indication: OESOPHAGEAL ABSCESS

REACTIONS (8)
  - Hypophagia [Fatal]
  - Treatment failure [Fatal]
  - Product use in unapproved indication [Fatal]
  - Transaminases increased [Fatal]
  - General physical health deterioration [Fatal]
  - Off label use [Fatal]
  - Staphylococcal infection [Fatal]
  - Thrombocytopenia [Fatal]
